FAERS Safety Report 4806897-5 (Version None)
Quarter: 2005Q4

REPORT INFORMATION
  Report Type: 
  Country: None (occurrence: None)
  Receive Date: 20051019
  Receipt Date: 20051006
  Transmission Date: 20060501
  Serious: Yes (Death, Hospitalization, Disabling)
  Sender: FDA-Public Use
  Company Number: 2005093049

PATIENT
  Age: 86 Year
  Sex: Male

DRUGS (4)
  1. ATORVASTATIN CALCIUM [Suspect]
     Indication: DYSLIPIDAEMIA
     Dosage: 10 MG (10 MG, 1 IN 1 D), ORAL
     Route: 048
     Dates: start: 20031201, end: 20040901
  2. XALATAN [Suspect]
     Indication: ILL-DEFINED DISORDER
  3. MARCUMAR [Concomitant]
  4. DIGOXIN [Concomitant]

REACTIONS (10)
  - APHASIA [None]
  - BLOOD PRESSURE INCREASED [None]
  - BRAIN DAMAGE [None]
  - CEREBRAL ISCHAEMIA [None]
  - DEAFNESS [None]
  - HAEMORRHAGE [None]
  - HEADACHE [None]
  - MALAISE [None]
  - MULTI-ORGAN FAILURE [None]
  - PUPIL FIXED [None]
